FAERS Safety Report 6034836-0 (Version None)
Quarter: 2009Q1

REPORT INFORMATION
  Report Type: 
  Country: None (occurrence: None)
  Receive Date: 20090109
  Receipt Date: 20090109
  Transmission Date: 20090719
  Serious: Yes (Disabling)
  Sender: FDA-Public Use
  Company Number: None

PATIENT
  Sex: Male

DRUGS (2)
  1. ZOMETA [Suspect]
     Indication: PROSTATE CANCER
     Dosage: 4 MG EVERY 3 WEEKS IV
     Route: 042
     Dates: start: 20010701, end: 20041001
  2. DOCETAXEL AND MITOXANTRONE (CHEMOTHERAPEUTIC AGENTS) [Concomitant]

REACTIONS (3)
  - IMPLANT SITE DISCHARGE [None]
  - JAW DISORDER [None]
  - PURULENT DISCHARGE [None]
